FAERS Safety Report 8625444 (Version 4)
Quarter: 2013Q1

REPORT INFORMATION
  Report Type: Spontaneous
  Country: US (occurrence: US)
  Receive Date: 20120620
  Receipt Date: 20130121
  Transmission Date: 20140127
  Serious: Yes (Hospitalization, Other)
  Sender: FDA-Public Use
  Company Number: PHEH2012US012124

PATIENT
  Age: 51 None
  Sex: Male

DRUGS (2)
  1. GILENYA [Suspect]
     Indication: MULTIPLE SCLEROSIS
     Dosage: 0.5 MG, QD
     Route: 048
     Dates: start: 20120605, end: 20120608
  2. METOPROLOL [Concomitant]
     Dosage: 3 DF, UNK

REACTIONS (12)
  - Mitral valve disease [Recovered/Resolved]
  - Ventricular tachycardia [Unknown]
  - Nodal rhythm [Unknown]
  - Electrocardiogram QT prolonged [Unknown]
  - Electrocardiogram PR prolongation [Unknown]
  - Left atrial dilatation [Unknown]
  - Electrocardiogram T wave inversion [Recovered/Resolved]
  - Ventricular extrasystoles [Recovered/Resolved]
  - Bundle branch block right [Unknown]
  - Electrocardiogram ST segment abnormal [Unknown]
  - Atrioventricular block second degree [Unknown]
  - Atrioventricular block complete [Unknown]
